FAERS Safety Report 7056255-0 (Version None)
Quarter: 2010Q4

REPORT INFORMATION
  Report Type: 
  Country: None (occurrence: None)
  Receive Date: 20101021
  Receipt Date: 20101008
  Transmission Date: 20110411
  Serious: Yes (Hospitalization)
  Sender: FDA-Public Use
  Company Number: US-ELI_LILLY_AND_COMPANY-US201010002022

PATIENT
  Sex: Female

DRUGS (7)
  1. ZYPREXA [Suspect]
     Dosage: 5 MG, EACH EVENING
  2. CITALOPRAM HYDROBROMIDE [Concomitant]
  3. BYSTOLIC [Concomitant]
  4. FOLIC ACID [Concomitant]
  5. LEVETIRACETAM [Concomitant]
  6. LEVOTHYROXINE [Concomitant]
  7. VALPROIC ACID [Concomitant]

REACTIONS (4)
  - ASTHENIA [None]
  - CLOSTRIDIUM TEST POSITIVE [None]
  - COUGH [None]
  - PNEUMONIA [None]
